FAERS Safety Report 5058994-X (Version None)
Quarter: 2006Q3

REPORT INFORMATION
  Report Type: 
  Country: None (occurrence: None)
  Receive Date: 20060719
  Receipt Date: 20060712
  Transmission Date: 20061208
  Serious: Yes (Death)
  Sender: FDA-Public Use
  Company Number: CLOF-10280

PATIENT
  Sex: 0

DRUGS (4)
  1. CLOFARABINE [Suspect]
     Indication: ACUTE LEUKAEMIA
     Dates: start: 20060629
  2. ACETAMINOPHEN [Concomitant]
  3. ALLOPURINOL [Concomitant]
  4. HYDROCORTISONE TAB [Concomitant]

REACTIONS (3)
  - HAEMODIALYSIS [None]
  - MULTI-ORGAN FAILURE [None]
  - SEPTIC SHOCK [None]
